FAERS Safety Report 4490238-X (Version None)
Quarter: 2004Q4

REPORT INFORMATION
  Report Type: 
  Country: None (occurrence: None)
  Receive Date: 20041027
  Receipt Date: 20041018
  Transmission Date: 20050328
  Serious: Yes (Other)
  Sender: FDA-Public Use
  Company Number: 2004-09-1528

PATIENT
  Age: 47 Year
  Sex: Male

DRUGS (3)
  1. INTRON A [Suspect]
     Indication: MALIGNANT MELANOMA
     Dosage: 3 MIU TIW SUBCUTANEOUS
     Route: 058
     Dates: start: 20040915
  2. ALLOPURINOL [Concomitant]
  3. FENOFIBRATE [Concomitant]

REACTIONS (4)
  - BLOOD CREATININE INCREASED [None]
  - LEUKOPENIA [None]
  - LYMPHOPENIA [None]
  - NEUTROPENIA [None]
